FAERS Safety Report 7419735-1 (Version None)
Quarter: 2011Q2

REPORT INFORMATION
  Report Type: 
  Country: None (occurrence: None)
  Receive Date: 20110412
  Receipt Date: 20110412
  Transmission Date: 20111010
  Serious: Yes (Other)
  Sender: FDA-Public Use
  Company Number: None

PATIENT
  Age: 36 Year
  Sex: Male
  Weight: 67.1324 kg

DRUGS (1)
  1. LOVAZA [Suspect]
     Indication: BLOOD TRIGLYCERIDES INCREASED
     Dosage: 3 ETHYL ESTERS 2X DAY PO
     Route: 048
     Dates: start: 20100801, end: 20101219

REACTIONS (2)
  - DEAFNESS TRANSITORY [None]
  - TINNITUS [None]
